FAERS Safety Report 10041699 (Version 1)
Quarter: 2014Q1

REPORT INFORMATION
  Report Type: Spontaneous
  Country: GB (occurrence: None)
  Receive Date: 20140325
  Receipt Date: 20140325
  Transmission Date: 20141002
  Serious: Yes (Life-Threatening, Hospitalization, Disabling, Other)
  Sender: FDA-Public Use
  Company Number: 2013MPI00777

PATIENT
  Age: 52 Year
  Sex: Male
  Weight: 110 kg

DRUGS (1)
  1. ADCETRIS [Suspect]
     Indication: HODGKIN^S DISEASE
     Route: 042
     Dates: start: 20130924, end: 20130924

REACTIONS (6)
  - Pancreatitis acute [None]
  - Pseudocyst [None]
  - Pleural effusion [None]
  - Spinal disorder [None]
  - Cholelithiasis [None]
  - Abdominal distension [None]
